FAERS Safety Report 7412960-5 (Version None)
Quarter: 2011Q2

REPORT INFORMATION
  Report Type: 
  Country: None (occurrence: None)
  Receive Date: 20110413
  Receipt Date: 20110330
  Transmission Date: 20111010
  Serious: Yes (Hospitalization)
  Sender: FDA-Public Use
  Company Number: PHHY2011IT30193

PATIENT
  Sex: Male

DRUGS (4)
  1. ATENOLOL [Suspect]
  2. DOXAZOSIN [Suspect]
  3. FUROSEMIDE [Suspect]
  4. NIFEDIPINE [Suspect]

REACTIONS (2)
  - HYPOTENSION [None]
  - BRADYCARDIA [None]
